FAERS Safety Report 11821185 (Version 2)
Quarter: 2016Q2

REPORT INFORMATION
  Report Type: Spontaneous
  Country: US (occurrence: US)
  Receive Date: 20151210
  Receipt Date: 20160517
  Transmission Date: 20160815
  Serious: No
  Sender: FDA-Public Use
  Company Number: US-JNJFOC-20150812102

PATIENT
  Sex: Male

DRUGS (2)
  1. BIOTIN [Concomitant]
     Active Substance: BIOTIN
  2. IMBRUVICA [Suspect]
     Active Substance: IBRUTINIB
     Indication: MANTLE CELL LYMPHOMA
     Route: 048
     Dates: start: 20141022

REACTIONS (2)
  - Nail disorder [Unknown]
  - Onychoclasis [Unknown]
